FAERS Safety Report 8187555-9 (Version None)
Quarter: 2012Q1

REPORT INFORMATION
  Report Type: 
  Country: None (occurrence: None)
  Receive Date: 20120302
  Receipt Date: 20120220
  Transmission Date: 20120608
  Serious: Yes (Other)
  Sender: FDA-Public Use
  Company Number: 1207472

PATIENT
  Age: 10 Year
  Sex: Male
  Weight: 44 kg

DRUGS (8)
  1. CODEINE SULFATE [Suspect]
     Indication: ANALGESIC THERAPY
  2. ZIPRASIDONE HYDROCHLORIDE [Suspect]
     Indication: PRODUCT USED FOR UNKNOWN INDICATION
  3. FENTANYL CITRATE [Suspect]
     Indication: ANALGESIC THERAPY
  4. MORPHINE SULFATE [Suspect]
     Indication: ANALGESIC THERAPY
  5. FLUVOXAMINE MALEATE [Concomitant]
  6. PROPOFOL [Concomitant]
  7. METHYLPHENIDATE [Concomitant]
  8. DIVALPROEX SODIUM [Concomitant]

REACTIONS (1)
  - SEROTONIN SYNDROME [None]
